FAERS Safety Report 7767359-9 (Version None)
Quarter: 2011Q3

REPORT INFORMATION
  Report Type: 
  Country: None (occurrence: None)
  Receive Date: 20110922
  Receipt Date: 20100826
  Transmission Date: 20111222
  Serious: Yes (Other)
  Sender: FDA-Public Use
  Company Number: US-ASTRAZENECA-2009UW00550

PATIENT
  Age: 306 Month
  Sex: Male

DRUGS (5)
  1. SEROQUEL [Suspect]
     Indication: BIPOLAR DISORDER
     Dosage: 250-300 MG/DAY
     Route: 048
     Dates: start: 19980401, end: 20010101
  2. DEPAKOTE [Concomitant]
     Dosage: 250 TO 1500 MG
     Dates: start: 19980909
  3. RESTORIL [Concomitant]
     Dates: start: 19990101
  4. MELLARIL [Concomitant]
     Dosage: 1 PO QHS, 1 HS PRN
     Route: 048
     Dates: start: 19980909
  5. SEROQUEL [Suspect]
     Dosage: 100 TO 300 MG
     Route: 048
     Dates: start: 19980909

REACTIONS (2)
  - DIABETIC KETOACIDOSIS [None]
  - DIABETES MELLITUS [None]
